FAERS Safety Report 4303094-7 (Version None)
Quarter: 2004Q1

REPORT INFORMATION
  Report Type: 
  Country: None (occurrence: None)
  Receive Date: 20040126
  Receipt Date: 20030929
  Transmission Date: 20041129
  Serious: No
  Sender: FDA-Public Use
  Company Number: USA030948549

PATIENT
  Age: 8 Year
  Sex: Female

DRUGS (3)
  1. STRATTERA [Suspect]
     Indication: ATTENTION DEFICIT/HYPERACTIVITY DISORDER
     Dosage: 25 MG/DAY
     Dates: start: 20030715, end: 20030915
  2. ZYPREXA [Suspect]
     Indication: BIPOLAR I DISORDER
     Dosage: 5 MG/AT BEDTIME
     Dates: start: 20030301, end: 20030301
  3. CONCERTA [Concomitant]

REACTIONS (6)
  - AMNESIA [None]
  - COGNITIVE DISORDER [None]
  - DISTURBANCE IN ATTENTION [None]
  - DRUG INEFFECTIVE [None]
  - INCREASED APPETITE [None]
  - WEIGHT INCREASED [None]
